FAERS Safety Report 5311890-2 (Version None)
Quarter: 2007Q2

REPORT INFORMATION
  Report Type: 
  Country: None (occurrence: None)
  Receive Date: 20070430
  Receipt Date: 20060427
  Transmission Date: 20071010
  Serious: No
  Sender: FDA-Public Use
  Company Number: 2006UW07584

PATIENT
  Age: 59 Year
  Sex: Male
  Weight: 75.7 kg

DRUGS (6)
  1. NEXIUM [Suspect]
     Indication: GASTROOESOPHAGEAL REFLUX DISEASE
     Route: 048
  2. TOPROL-XL [Concomitant]
  3. ACYCLOVIR [Concomitant]
  4. TEMAZEPAM [Concomitant]
  5. ZOCOR [Concomitant]
  6. QUININE [Concomitant]

REACTIONS (7)
  - ABDOMINAL DISTENSION [None]
  - CHEST DISCOMFORT [None]
  - DIARRHOEA [None]
  - DYSPHONIA [None]
  - FLATULENCE [None]
  - GASTROENTERITIS VIRAL [None]
  - GASTROOESOPHAGEAL REFLUX DISEASE [None]
